FAERS Safety Report 25582022 (Version 1)
Quarter: 2025Q3

REPORT INFORMATION
  Report Type: Spontaneous
  Country: GB (occurrence: GB)
  Receive Date: 20250719
  Receipt Date: 20250719
  Transmission Date: 20251021
  Serious: Yes (Other)
  Sender: ACCORD
  Company Number: None

PATIENT
  Sex: Male
  Weight: 85 kg

DRUGS (1)
  1. TADALAFIL [Suspect]
     Active Substance: TADALAFIL
     Indication: Radical prostatectomy
     Dates: start: 20250528, end: 20250608

REACTIONS (2)
  - Hypotension [Recovered/Resolved with Sequelae]
  - Loss of consciousness [Unknown]

NARRATIVE: CASE EVENT DATE: 20250528
